FAERS Safety Report 5139733-0 (Version None)
Quarter: 2006Q4

REPORT INFORMATION
  Report Type: 
  Country: None (occurrence: None)
  Receive Date: 20061024
  Receipt Date: 20061010
  Transmission Date: 20070319
  Serious: Yes (Other)
  Sender: FDA-Public Use
  Company Number: 2006AP000832

PATIENT
  Age: 24 Year
  Sex: Male

DRUGS (5)
  1. PAROXETINE HCL [Suspect]
     Indication: ANXIETY
     Dosage: 20 MG; QD; SEE IMAGE
     Dates: start: 20020501, end: 20020901
  2. PAROXETINE HCL [Suspect]
     Indication: DEPRESSION
     Dosage: 20 MG; QD; SEE IMAGE
     Dates: start: 20020501, end: 20020901
  3. PAROXETINE HCL [Suspect]
     Indication: ANXIETY
     Dosage: 20 MG; QD; SEE IMAGE
     Dates: start: 20020901
  4. PAROXETINE HCL [Suspect]
     Indication: DEPRESSION
     Dosage: 20 MG; QD; SEE IMAGE
     Dates: start: 20020901
  5. ZOPICLONE (ZOPICLONE) [Suspect]
     Indication: OFF LABEL USE
     Dosage: 6 TAB; TAB; PO; 1X
     Route: 048
     Dates: start: 20030801, end: 20030801

REACTIONS (15)
  - AGGRESSION [None]
  - ALCOHOL USE [None]
  - ANXIETY [None]
  - DRUG ABUSER [None]
  - DRUG DOSE OMISSION [None]
  - DRUG INTERACTION [None]
  - HEADACHE [None]
  - HOMICIDE [None]
  - HYPERHIDROSIS [None]
  - NAUSEA [None]
  - NIGHTMARE [None]
  - PARTNER STRESS [None]
  - SLEEP WALKING [None]
  - SOCIAL AVOIDANT BEHAVIOUR [None]
  - TREMOR [None]
